FAERS Safety Report 22971502 (Version 2)
Quarter: 2024Q2

REPORT INFORMATION
  Report Type: Report from Study
  Country: US (occurrence: US)
  Receive Date: 20230922
  Receipt Date: 20240525
  Transmission Date: 20240716
  Serious: Yes (Other)
  Sender: FDA-Public Use
  Company Number: US-TAKEDA-US201926604

PATIENT
  Sex: Female

DRUGS (2)
  1. HUMAN IMMUNOGLOBULIN G [Suspect]
     Active Substance: HUMAN IMMUNOGLOBULIN G
     Indication: Primary immunodeficiency syndrome
     Dosage: UNK
     Route: 042
  2. HUMAN IMMUNOGLOBULIN G [Suspect]
     Active Substance: HUMAN IMMUNOGLOBULIN G
     Indication: Immunodeficiency common variable

REACTIONS (4)
  - Thyroid cancer [Recovered/Resolved]
  - Fatigue [Recovering/Resolving]
  - Headache [Unknown]
  - COVID-19 [Unknown]
